FAERS Safety Report 6852599-3 (Version None)
Quarter: 2010Q3

REPORT INFORMATION
  Report Type: 
  Country: None (occurrence: None)
  Receive Date: 20100717
  Receipt Date: 20071115
  Transmission Date: 20110219
  Serious: No
  Sender: FDA-Public Use
  Company Number: US-PFIZER INC-2007097878

PATIENT
  Sex: Female
  Weight: 90.9 kg

DRUGS (2)
  1. CHANTIX [Suspect]
     Indication: SMOKING CESSATION THERAPY
     Dates: start: 20071001
  2. ACETYLSALICYLIC ACID [Concomitant]

REACTIONS (4)
  - FLANK PAIN [None]
  - HEADACHE [None]
  - MENSTRUAL DISORDER [None]
  - MENSTRUATION IRREGULAR [None]
